FAERS Safety Report 18799787 (Version 2)
Quarter: 2021Q3

REPORT INFORMATION
  Report Type: Report from Study
  Country: BR (occurrence: BR)
  Receive Date: 20210128
  Receipt Date: 20210709
  Transmission Date: 20211014
  Serious: Yes (Other)
  Sender: FDA-Public Use
  Company Number: NVSC2021BR017781

PATIENT
  Sex: Female

DRUGS (1)
  1. OMNITROPE [Suspect]
     Active Substance: SOMATROPIN
     Indication: GROWTH HORMONE DEFICIENCY
     Dosage: UNK (0.9 MG/15 MG) 7X
     Route: 065

REACTIONS (4)
  - Application site pain [Unknown]
  - Needle issue [Unknown]
  - Haemorrhage [Unknown]
  - Skin discolouration [Unknown]
